FAERS Safety Report 7911179-9 (Version None)
Quarter: 2011Q4

REPORT INFORMATION
  Report Type: 
  Country: None (occurrence: None)
  Receive Date: 20111110
  Receipt Date: 20111110
  Transmission Date: 20120403
  Serious: No
  Sender: FDA-Public Use
  Company Number: None

PATIENT
  Sex: Male
  Weight: 86 kg

DRUGS (3)
  1. TRIMIX (ALPROSTADIL, PHENTOLAMINE, PAPAVERINE) [Suspect]
     Indication: ERECTILE DYSFUNCTION
     Dosage: 0.175ML, 0.225ML PRN INTRACAVERNOSAL
     Route: 017
     Dates: start: 20111006
  2. TRIMIX (ALPROSTADIL, PHENTOLAMINE, PAPAVERINE) [Suspect]
     Indication: ERECTILE DYSFUNCTION
     Dosage: 0.175ML, 0.225ML PRN INTRACAVERNOSAL
     Route: 017
     Dates: start: 20111008
  3. TRIMIX (ALPROSTADIL, PHENTOLAMINE, PAPAVERINE) [Suspect]
     Indication: ERECTILE DYSFUNCTION
     Dosage: 0.175ML, 0.225ML PRN INTRACAVERNOSAL
     Route: 017
     Dates: start: 20111101

REACTIONS (4)
  - PRIAPISM [None]
  - DISCOMFORT [None]
  - ERECTION INCREASED [None]
  - PAIN [None]
